FAERS Safety Report 6385115-3 (Version None)
Quarter: 2009Q4

REPORT INFORMATION
  Report Type: 
  Country: None (occurrence: None)
  Receive Date: 20091002
  Receipt Date: 20090929
  Transmission Date: 20100525
  Serious: Yes (Hospitalization)
  Sender: FDA-Public Use
  Company Number: US-BRISTOL-MYERS SQUIBB COMPANY-14717284

PATIENT
  Age: 51 Year
  Sex: Female

DRUGS (3)
  1. ABATACEPT [Suspect]
     Indication: COLITIS ULCERATIVE
     Dosage: NO OF COURSE: 9
     Route: 042
     Dates: start: 20081229
  2. PREDNISONE [Concomitant]
     Dates: start: 20090715
  3. FERROUS GLUCONATE [Concomitant]
     Dates: start: 20090114

REACTIONS (1)
  - ANAEMIA [None]
